FAERS Safety Report 25929258 (Version 2)
Quarter: 2025Q4

REPORT INFORMATION
  Report Type: Spontaneous
  Country: US (occurrence: US)
  Receive Date: 20251016
  Receipt Date: 20251218
  Transmission Date: 20260119
  Serious: No
  Sender: TAKEDA
  Company Number: US-TAKEDA-2025TUS090643

PATIENT
  Age: 75 Year
  Sex: Male
  Weight: 113.37 kg

DRUGS (4)
  1. TAKHZYRO [Suspect]
     Active Substance: LANADELUMAB-FLYO
     Indication: Immune system disorder
     Dosage: 300 MILLIGRAM, Q4WEEKS
     Dates: start: 20190603
  2. TAKHZYRO [Suspect]
     Active Substance: LANADELUMAB-FLYO
     Dosage: 300 MILLIGRAM, Q4WEEKS
  3. TAKHZYRO [Suspect]
     Active Substance: LANADELUMAB-FLYO
  4. ICATIBANT ACETATE [Concomitant]
     Active Substance: ICATIBANT ACETATE
     Dosage: UNK

REACTIONS (2)
  - Intervertebral disc protrusion [Unknown]
  - Influenza [Unknown]
